FAERS Safety Report 5287799-X (Version None)
Quarter: 2007Q2

REPORT INFORMATION
  Report Type: 
  Country: None (occurrence: None)
  Receive Date: 20070405
  Receipt Date: 20070322
  Transmission Date: 20071010
  Serious: Yes (Other)
  Sender: FDA-Public Use
  Company Number: PHEH2007US03438

PATIENT
  Age: 53 Year
  Sex: Female

DRUGS (20)
  1. AREDIA [Suspect]
     Indication: SARCOIDOSIS
  2. SUDAFED 12 HOUR [Concomitant]
  3. CELEBREX [Concomitant]
  4. TYLENOL [Concomitant]
  5. CALCIUM W/VITAMIN D NOS [Concomitant]
  6. PREMPRO [Concomitant]
  7. EPOGEN [Concomitant]
  8. METHOTREXATE [Concomitant]
     Indication: SARCOIDOSIS
     Dates: end: 20030101
  9. SEPTRA [Concomitant]
  10. VIOXX [Concomitant]
  11. PREVACID [Concomitant]
  12. ZOMETA [Suspect]
     Indication: SARCOIDOSIS
     Dates: start: 20031201
  13. ARANESP [Concomitant]
     Indication: ANAEMIA
  14. CORTISONE ACETATE [Concomitant]
     Dosage: 80 MG, ONCE/SINGLE
     Route: 030
     Dates: start: 20030601
  15. PREDNISONE [Concomitant]
  16. NAPROSYN [Concomitant]
     Dates: start: 20060101
  17. INFLUENZA VACCINE [Concomitant]
     Dates: start: 20040101
  18. PNEUMOCOCCAL VACCINE [Concomitant]
  19. PREMARIN [Concomitant]
     Indication: MENOPAUSE
     Dosage: 0.3 MG, QD
  20. PROVERA [Concomitant]
     Dosage: 2.5 MG, QD

REACTIONS (50)
  - ANAEMIA [None]
  - ANGIOTENSIN CONVERTING ENZYME INCREASED [None]
  - ARTHRALGIA [None]
  - BACK PAIN [None]
  - BLOOD UREA INCREASED [None]
  - BONE DISORDER [None]
  - CERVICITIS [None]
  - CHEST PAIN [None]
  - COLONIC POLYP [None]
  - DECREASED APPETITE [None]
  - DEPRESSION [None]
  - DIARRHOEA [None]
  - DISEASE PROGRESSION [None]
  - DYSPNOEA [None]
  - EAR TUBE INSERTION [None]
  - ENDOMETRIAL ATROPHY [None]
  - FEELING ABNORMAL [None]
  - GINGIVAL ABSCESS [None]
  - HAEMORRHAGE [None]
  - HAEMORRHOIDS [None]
  - HEADACHE [None]
  - HYPERBARIC OXYGEN THERAPY [None]
  - IMPAIRED HEALING [None]
  - INSOMNIA [None]
  - LIVER FUNCTION TEST ABNORMAL [None]
  - MALAISE [None]
  - MICTURITION URGENCY [None]
  - MUSCLE SPASMS [None]
  - MYALGIA [None]
  - NOCTURIA [None]
  - OSTEOMYELITIS [None]
  - OSTEONECROSIS [None]
  - PAIN [None]
  - PELVIC PAIN [None]
  - POLLAKIURIA [None]
  - PYREXIA [None]
  - RASH [None]
  - RECTAL HAEMORRHAGE [None]
  - RHINITIS SEASONAL [None]
  - SARCOIDOSIS [None]
  - SEQUESTRECTOMY [None]
  - SPLENOMEGALY [None]
  - SURGERY [None]
  - TOOTH EXTRACTION [None]
  - TOOTHACHE [None]
  - TYMPANIC MEMBRANE DISORDER [None]
  - UTERINE HAEMORRHAGE [None]
  - VERTIGO [None]
  - VISION BLURRED [None]
  - WEIGHT DECREASED [None]
